FAERS Safety Report 18785598 (Version 1)
Quarter: 2021Q1

REPORT INFORMATION
  Report Type: Other
  Country: US (occurrence: US)
  Receive Date: 20210125
  Receipt Date: 20210125
  Transmission Date: 20210419
  Serious: Yes (Hospitalization)
  Sender: FDA-Public Use
  Company Number: US-ROCHE-2571150

PATIENT
  Age: 50 Year
  Sex: Male

DRUGS (12)
  1. DOXORUBICIN [Concomitant]
     Active Substance: DOXORUBICIN
     Indication: LYMPHOMA
  2. PROCHLORPERAZINE. [Concomitant]
     Active Substance: PROCHLORPERAZINE
     Indication: NAUSEA
     Dosage: VOMITING
  3. VINCRISTINE [Concomitant]
     Active Substance: VINCRISTINE
     Indication: LYMPHOMA
  4. GABAPENTIN. [Concomitant]
     Active Substance: GABAPENTIN
  5. RITUXIMAB. [Suspect]
     Active Substance: RITUXIMAB
     Indication: LYMPHOMA
     Route: 065
  6. CYCLOPHOSPHAMIDE. [Concomitant]
     Active Substance: CYCLOPHOSPHAMIDE
     Indication: LYMPHOMA
  7. DEXAMETHASONE. [Concomitant]
     Active Substance: DEXAMETHASONE
     Indication: LYMPHOMA
  8. AMLODIPINE [Concomitant]
     Active Substance: AMLODIPINE BESYLATE
  9. DIPHENHYDRAMINE. [Concomitant]
     Active Substance: DIPHENHYDRAMINE
  10. ACETAMINOPHEN;PHENYLEPHRINE [Concomitant]
  11. OXYCODONE [Concomitant]
     Active Substance: OXYCODONE
     Indication: BACK PAIN
  12. MS CONTIN [Concomitant]
     Active Substance: MORPHINE SULFATE

REACTIONS (2)
  - Chlamydial infection [Recovered/Resolved]
  - Neutropenia [Recovered/Resolved]
